FAERS Safety Report 20479081 (Version 1)
Quarter: 2022Q1

REPORT INFORMATION
  Report Type: Spontaneous
  Country: US (occurrence: US)
  Receive Date: 20220216
  Receipt Date: 20220216
  Transmission Date: 20220423
  Serious: Yes (Other)
  Sender: FDA-Public Use
  Company Number: US-GLAXOSMITHKLINE-US2022GSK025421

PATIENT
  Sex: Male

DRUGS (12)
  1. ZANTAC [Suspect]
     Active Substance: RANITIDINE HYDROCHLORIDE
     Indication: Gastrooesophageal reflux disease
     Dosage: 150 MG, QD
     Route: 065
     Dates: start: 199801, end: 201304
  2. ZANTAC [Suspect]
     Active Substance: RANITIDINE HYDROCHLORIDE
     Indication: Hiatus hernia
  3. ZANTAC [Suspect]
     Active Substance: RANITIDINE HYDROCHLORIDE
     Indication: Gastrooesophageal reflux disease
     Dosage: 150 MG, QD
     Route: 065
     Dates: start: 199801, end: 201304
  4. ZANTAC [Suspect]
     Active Substance: RANITIDINE HYDROCHLORIDE
     Indication: Hiatus hernia
  5. RANITIDINE [Suspect]
     Active Substance: RANITIDINE
     Indication: Gastrooesophageal reflux disease
     Dosage: 75 MG, QD
     Route: 065
     Dates: start: 199801, end: 201304
  6. RANITIDINE [Suspect]
     Active Substance: RANITIDINE
     Indication: Hiatus hernia
     Dosage: 150 MG, QD
     Route: 065
     Dates: start: 199801, end: 201304
  7. RANITIDINE [Suspect]
     Active Substance: RANITIDINE
     Indication: Gastrooesophageal reflux disease
     Dosage: 75 MG, QD
     Route: 065
     Dates: start: 199801, end: 201304
  8. RANITIDINE [Suspect]
     Active Substance: RANITIDINE
     Indication: Hiatus hernia
     Dosage: 150 MG, QD
     Route: 065
     Dates: start: 199801, end: 201304
  9. RANITIDINE [Suspect]
     Active Substance: RANITIDINE
     Indication: Gastrooesophageal reflux disease
     Dosage: 75 MG, QD
     Route: 065
     Dates: start: 199801, end: 201304
  10. RANITIDINE [Suspect]
     Active Substance: RANITIDINE
     Indication: Hiatus hernia
     Dosage: 150 MG, QD
     Route: 065
     Dates: start: 199801, end: 201304
  11. RANITIDINE [Suspect]
     Active Substance: RANITIDINE
     Indication: Gastrooesophageal reflux disease
     Dosage: 75 MG, QD
     Route: 065
     Dates: start: 199801, end: 201304
  12. RANITIDINE [Suspect]
     Active Substance: RANITIDINE
     Indication: Hiatus hernia
     Dosage: 150 MG, QD
     Route: 065
     Dates: start: 199801, end: 201304

REACTIONS (1)
  - Oesophageal carcinoma [Unknown]
